FAERS Safety Report 10615957 (Version 1)
Quarter: 2014Q4

REPORT INFORMATION
  Report Type: Spontaneous
  Country: US (occurrence: None)
  Receive Date: 20141125
  Receipt Date: 20141125
  Transmission Date: 20150529
  Serious: Yes (Hospitalization)
  Sender: FDA-Public Use
  Company Number: None

PATIENT
  Age: 78 Year
  Sex: Male
  Weight: 83.9 kg

DRUGS (2)
  1. MORPHINE [Suspect]
     Active Substance: MORPHINE
     Indication: PAIN
     Route: 048
     Dates: start: 20140822, end: 20140829
  2. MORPHINE [Suspect]
     Active Substance: MORPHINE
     Dates: start: 20140825, end: 20140829

REACTIONS (8)
  - Subdural haematoma [None]
  - Mental status changes [None]
  - Gastrointestinal motility disorder [None]
  - Nausea [None]
  - Blood urea increased [None]
  - Blood creatine increased [None]
  - No therapeutic response [None]
  - Hallucination, visual [None]

NARRATIVE: CASE EVENT DATE: 20140829
